FAERS Safety Report 9056452 (Version 1)
Quarter: 2013Q1

REPORT INFORMATION
  Report Type: Spontaneous
  Country: US (occurrence: US)
  Receive Date: 20130204
  Receipt Date: 20130204
  Transmission Date: 20140127
  Serious: Yes (Hospitalization, Other)
  Sender: FDA-Public Use
  Company Number: US-ELI_LILLY_AND_COMPANY-US201210006996

PATIENT
  Sex: Female
  Weight: 61.95 kg

DRUGS (6)
  1. CYMBALTA [Suspect]
     Dosage: 60 MG, UNKNOWN
     Dates: start: 20110712
  2. DEXLANSOPRAZOLE [Concomitant]
  3. AXID [Concomitant]
     Indication: GASTROOESOPHAGEAL REFLUX DISEASE
     Dosage: 150 MG, EACH EVENING
     Route: 048
  4. TRAMADOL [Concomitant]
  5. GLUCOSAMINE [Concomitant]
  6. LEVORA [Concomitant]
     Indication: CONTRACEPTION
     Dosage: 1 DF, QD

REACTIONS (6)
  - Neuroleptic malignant syndrome [Recovering/Resolving]
  - Psychotic disorder [Unknown]
  - Suicidal ideation [Recovered/Resolved]
  - Drug interaction [Recovering/Resolving]
  - Drug dispensing error [Unknown]
  - Intentional drug misuse [Unknown]
